FAERS Safety Report 16458465 (Version 1)
Quarter: 2019Q2

REPORT INFORMATION
  Report Type: Spontaneous
  Country: US (occurrence: US)
  Receive Date: 20190620
  Receipt Date: 20190620
  Transmission Date: 20190711
  Serious: No
  Sender: FDA-Public Use
  Company Number: US-THERAPEUTICSMD-2019TMD00312

PATIENT
  Sex: Female

DRUGS (2)
  1. IMVEXXY [Suspect]
     Active Substance: ESTRADIOL
     Indication: ILL-DEFINED DISORDER
     Dosage: 10 ?G, 2X/WEEK
     Dates: start: 2018
  2. IMVEXXY [Suspect]
     Active Substance: ESTRADIOL
     Dosage: 10 ?G
     Dates: start: 2018, end: 2018

REACTIONS (2)
  - Off label use [Not Recovered/Not Resolved]
  - Urine odour abnormal [Unknown]

NARRATIVE: CASE EVENT DATE: 2018
